FAERS Safety Report 18217867 (Version 1)
Quarter: 2020Q3

REPORT INFORMATION
  Report Type: Spontaneous
  Country: DE (occurrence: DE)
  Receive Date: 20200901
  Receipt Date: 20200901
  Transmission Date: 20201103
  Serious: Yes (Life-Threatening)
  Sender: FDA-Public Use
  Company Number: DE-EMD SERONO-E2B_90079784

PATIENT
  Age: 55 Year
  Sex: Female
  Weight: 110 kg

DRUGS (3)
  1. JANUMET [Suspect]
     Active Substance: METFORMIN HYDROCHLORIDE\SITAGLIPTIN PHOSPHATE
     Indication: TYPE 2 DIABETES MELLITUS
     Dosage: FORM STRENGTH: 50/1000MG
  2. METFORMIN [Suspect]
     Active Substance: METFORMIN HYDROCHLORIDE
     Indication: TYPE 2 DIABETES MELLITUS
  3. CANDECOR [Concomitant]
     Active Substance: CANDESARTAN CILEXETIL
     Indication: HYPERTENSION
     Dosage: FORM STRENGTH: 16/12.5MG
     Route: 048

REACTIONS (5)
  - Hyperventilation [Unknown]
  - Lactic acidosis [Unknown]
  - Hyperkalaemia [Unknown]
  - Hypoglycaemia [Unknown]
  - Renal failure [Unknown]

NARRATIVE: CASE EVENT DATE: 20200629
